FAERS Safety Report 9851360 (Version 2)
Quarter: 2014Q1

REPORT INFORMATION
  Report Type: Spontaneous
  Country: JP (occurrence: JP)
  Receive Date: 20140129
  Receipt Date: 20140210
  Transmission Date: 20141002
  Serious: Yes (Death)
  Sender: FDA-Public Use
  Company Number: JP-AMGEN-JPNSP2014006005

PATIENT
  Age: 82 Year
  Sex: Female
  Weight: 39 kg

DRUGS (8)
  1. PRALIA [Suspect]
     Indication: OSTEOPOROSIS
     Dosage: 60 MG, UNK
     Route: 058
     Dates: start: 20131107, end: 20131107
  2. PREDNISOLONE [Concomitant]
     Indication: SYSTEMIC LUPUS ERYTHEMATOSUS
     Dosage: IMMEDIATELY AFTER BREAKFAST
     Route: 048
     Dates: start: 1998, end: 20131218
  3. KOLANTYL                           /06363201/ [Concomitant]
     Indication: GASTROENTERITIS
     Dosage: IMMEDIATELY AFTER EACH MEAL
     Route: 048
     Dates: start: 20131218
  4. BIOFERMIN                          /07958301/ [Concomitant]
     Indication: GASTROENTERITIS
     Dosage: IMMEDIATELY AFTER EACH MEAL
     Route: 048
     Dates: start: 20131218
  5. WARFARIN [Concomitant]
     Indication: PULMONARY HYPERTENSION
     Dosage: IMMEDIATELY AFTER BREAKFAST
     Route: 048
     Dates: start: 1998, end: 20131218
  6. WARFARIN [Concomitant]
     Indication: PULMONARY HYPERTENSION
  7. DORNER [Concomitant]
     Indication: PULMONARY HYPERTENSION
     Dosage: IMMEDIATELY AFTER EACH MEAL
     Route: 048
     Dates: start: 20080708, end: 20131218
  8. REMINYL [Concomitant]
     Indication: DEMENTIA
     Dosage: IMMEDIATELY AFTER BREAKFAST AND DINNER
     Route: 048
     Dates: start: 20131011, end: 20131218

REACTIONS (1)
  - Sudden death [Fatal]
